FAERS Safety Report 9788792 (Version 3)
Quarter: 2014Q4

REPORT INFORMATION
  Report Type: Report from Study
  Country: JP (occurrence: JP)
  Receive Date: 20131230
  Receipt Date: 20141215
  Transmission Date: 20150529
  Serious: Yes (Other)
  Sender: FDA-Public Use
  Company Number: JP-GLAXOSMITHKLINE-B0940455A

PATIENT
  Age: 77 Year
  Sex: Male

DRUGS (23)
  1. DEXART [Concomitant]
     Active Substance: DEXAMETHASONE SODIUM PHOSPHATE
     Route: 051
     Dates: start: 20131112, end: 20131112
  2. ACETAMINOPHEN. [Concomitant]
     Active Substance: ACETAMINOPHEN
     Route: 048
     Dates: start: 20131024, end: 20131024
  3. ACETAMINOPHEN. [Concomitant]
     Active Substance: ACETAMINOPHEN
     Route: 048
     Dates: start: 20131119, end: 20131119
  4. OFATUMUMAB [Suspect]
     Active Substance: OFATUMUMAB
     Indication: B-CELL SMALL LYMPHOCYTIC LYMPHOMA
     Route: 041
     Dates: start: 20131024, end: 20131024
  5. OFATUMUMAB [Suspect]
     Active Substance: OFATUMUMAB
     Route: 041
     Dates: start: 20131112, end: 20131112
  6. DEXART [Concomitant]
     Active Substance: DEXAMETHASONE SODIUM PHOSPHATE
     Route: 051
     Dates: start: 20131119, end: 20131119
  7. BAKTAR [Concomitant]
     Active Substance: SULFAMETHOXAZOLE\TRIMETHOPRIM
     Indication: INFECTION PROPHYLAXIS
     Route: 048
  8. OFATUMUMAB [Suspect]
     Active Substance: OFATUMUMAB
     Route: 041
     Dates: start: 20131119, end: 20131119
  9. OFATUMUMAB [Suspect]
     Active Substance: OFATUMUMAB
     Route: 041
     Dates: start: 20131126, end: 20131126
  10. ACETAMINOPHEN. [Concomitant]
     Active Substance: ACETAMINOPHEN
     Route: 048
     Dates: start: 20131112, end: 20131112
  11. ACETAMINOPHEN. [Concomitant]
     Active Substance: ACETAMINOPHEN
     Route: 048
     Dates: start: 20131126, end: 20131126
  12. POLARAMINE [Concomitant]
     Active Substance: DEXCHLORPHENIRAMINE MALEATE
     Route: 065
     Dates: start: 20131112, end: 20131112
  13. OFATUMUMAB [Suspect]
     Active Substance: OFATUMUMAB
     Indication: B-CELL SMALL LYMPHOCYTIC LYMPHOMA
     Route: 041
     Dates: start: 20131031, end: 20131031
  14. DEXART [Concomitant]
     Active Substance: DEXAMETHASONE SODIUM PHOSPHATE
     Route: 051
     Dates: start: 20131031, end: 20131031
  15. ACETAMINOPHEN. [Concomitant]
     Active Substance: ACETAMINOPHEN
     Route: 048
     Dates: start: 20131031, end: 20131031
  16. POLARAMINE [Concomitant]
     Active Substance: DEXCHLORPHENIRAMINE MALEATE
     Route: 065
     Dates: start: 20131031, end: 20131031
  17. DEXART [Concomitant]
     Active Substance: DEXAMETHASONE SODIUM PHOSPHATE
     Route: 051
     Dates: start: 20131126, end: 20131126
  18. POLARAMINE [Concomitant]
     Active Substance: DEXCHLORPHENIRAMINE MALEATE
     Route: 065
     Dates: start: 20131024, end: 20131024
  19. POLARAMINE [Concomitant]
     Active Substance: DEXCHLORPHENIRAMINE MALEATE
     Route: 065
     Dates: start: 20131119, end: 20131119
  20. PREDNISOLONE. [Concomitant]
     Active Substance: PREDNISOLONE
     Indication: INFECTION PROPHYLAXIS
     Route: 065
  21. DEXART [Concomitant]
     Active Substance: DEXAMETHASONE SODIUM PHOSPHATE
     Route: 051
     Dates: start: 20131024, end: 20131024
  22. ACETAMINOPHEN. [Concomitant]
     Active Substance: ACETAMINOPHEN
     Indication: B-CELL SMALL LYMPHOCYTIC LYMPHOMA
     Route: 065
  23. POLARAMINE [Concomitant]
     Active Substance: DEXCHLORPHENIRAMINE MALEATE
     Route: 065
     Dates: start: 20131126, end: 20131126

REACTIONS (3)
  - Hypoxia [Recovered/Resolved]
  - Hypoxia [Recovered/Resolved]
  - Infusion site extravasation [Unknown]

NARRATIVE: CASE EVENT DATE: 20131024
